FAERS Safety Report 9290085 (Version 1)
Quarter: 2013Q2

REPORT INFORMATION
  Report Type: Spontaneous
  Country: US (occurrence: None)
  Receive Date: 20130510
  Receipt Date: 20130510
  Transmission Date: 20140414
  Serious: Yes (Hospitalization, Other)
  Sender: FDA-Public Use
  Company Number: 2013050010

PATIENT
  Sex: Female
  Weight: 87.54 kg

DRUGS (4)
  1. SOMA [Suspect]
     Indication: MUSCLE SPASMS
     Dosage: (350 MG,ONCE OR TWO TIMES DAILY)
  2. EFFEXOR XR [Suspect]
     Indication: FIBROMYALGIA
     Dosage: (225 MG, 1 IN 1 D),
     Route: 048
     Dates: start: 2004
  3. XANAX [Suspect]
     Dates: end: 20111208
  4. VICODIN ES (HYDROCODONE BITARTRATE, ACETAMINOPHEN) [Concomitant]

REACTIONS (16)
  - Gastrooesophageal reflux disease [None]
  - Palpitations [None]
  - Heart rate increased [None]
  - Nausea [None]
  - Neuropathy peripheral [None]
  - Hot flush [None]
  - Dizziness [None]
  - Feeling cold [None]
  - Feeling abnormal [None]
  - Drug withdrawal syndrome [None]
  - Adverse event [None]
  - Pain [None]
  - Insomnia [None]
  - Bedridden [None]
  - Treatment noncompliance [None]
  - Incorrect dose administered [None]
